FAERS Safety Report 24663651 (Version 2)
Quarter: 2024Q4

REPORT INFORMATION
  Report Type: Spontaneous
  Country: US (occurrence: US)
  Receive Date: 20241126
  Receipt Date: 20241227
  Transmission Date: 20250114
  Serious: Yes (Death, Other)
  Sender: IMMUNOCORE
  Company Number: US-IMMUNOCORE, LTD.-2024-IMC-003393

PATIENT
  Sex: Male

DRUGS (3)
  1. TEBENTAFUSP [Suspect]
     Active Substance: TEBENTAFUSP
     Indication: Malignant melanoma
     Dosage: 20 MICROGRAM
     Route: 042
     Dates: start: 20210429
  2. TEBENTAFUSP [Suspect]
     Active Substance: TEBENTAFUSP
     Dosage: 30 MICROGRAM
     Route: 042
  3. TEBENTAFUSP [Suspect]
     Active Substance: TEBENTAFUSP
     Dosage: 68 MICROGRAM
     Route: 042
     Dates: start: 20220512

REACTIONS (5)
  - Malignant neoplasm progression [Fatal]
  - Pyrexia [Recovered/Resolved]
  - Nausea [Recovered/Resolved]
  - Vomiting [Recovered/Resolved]
  - Off label use [Unknown]

NARRATIVE: CASE EVENT DATE: 20220522
